FAERS Safety Report 7556583-6 (Version None)
Quarter: 2011Q2

REPORT INFORMATION
  Report Type: 
  Country: None (occurrence: None)
  Receive Date: 20110610
  Receipt Date: 20110526
  Transmission Date: 20111010
  Serious: Yes (Hospitalization)
  Sender: FDA-Public Use
  Company Number: DSA_46806_2011

PATIENT
  Age: 89 Year
  Sex: Female

DRUGS (2)
  1. LANOXIN [Concomitant]
  2. ENALAPRIL MALEATE [Suspect]
     Indication: HYPERTENSION
     Dosage: (20 MG QD ORAL)
     Route: 048
     Dates: start: 20000426, end: 20100426

REACTIONS (6)
  - HEAD INJURY [None]
  - BLOOD PRESSURE DIASTOLIC DECREASED [None]
  - SYNCOPE [None]
  - ELECTROCARDIOGRAM ABNORMAL [None]
  - DROP ATTACKS [None]
  - BLOOD PRESSURE SYSTOLIC INCREASED [None]
